FAERS Safety Report 21766336 (Version 4)
Quarter: 2023Q4

REPORT INFORMATION
  Report Type: Other
  Country: DE (occurrence: None)
  Receive Date: 20221222
  Receipt Date: 20231110
  Transmission Date: 20240109
  Serious: Yes (Other)
  Sender: FDA-Public Use
  Company Number: DE-ROCHE-2573596

PATIENT
  Age: 40 Year
  Sex: Female
  Weight: 111 kg

DRUGS (7)
  1. OCREVUS [Suspect]
     Active Substance: OCRELIZUMAB
     Indication: Relapsing-remitting multiple sclerosis
     Dosage: DATE OF TREATMENT: /MAR/2019, 27/AUG/2020?510DAYS, 600MG
     Route: 042
     Dates: start: 20180901
  2. OCREVUS [Suspect]
     Active Substance: OCRELIZUMAB
     Route: 042
     Dates: start: 201903
  3. OCREVUS [Suspect]
     Active Substance: OCRELIZUMAB
     Route: 042
     Dates: start: 20200827
  4. CORTISONE [Suspect]
     Active Substance: CORTISONE
     Indication: Product used for unknown indication
     Route: 042
     Dates: start: 20200827
  5. CORTISONE [Suspect]
     Active Substance: CORTISONE
     Route: 042
     Dates: start: 20200827
  6. GABAPENTIN [Concomitant]
     Active Substance: GABAPENTIN
  7. PROPIVERINE HYDROCHLORIDE [Concomitant]
     Active Substance: PROPIVERINE HYDROCHLORIDE

REACTIONS (18)
  - Weight increased [Recovered/Resolved]
  - B-lymphocyte abnormalities [Recovered/Resolved]
  - Ear discomfort [Recovered/Resolved]
  - Weight decreased [Not Recovered/Not Resolved]
  - Osteoarthritis [Recovering/Resolving]
  - Chronic gastritis [Recovered/Resolved]
  - Hypersensitivity [Recovering/Resolving]
  - Pain in extremity [Not Recovered/Not Resolved]
  - COVID-19 [Recovered/Resolved]
  - Cough [Recovered/Resolved]
  - Fatigue [Not Recovered/Not Resolved]
  - Prolonged expiration [Recovering/Resolving]
  - Arrhythmia [Not Recovered/Not Resolved]
  - Hyperhidrosis [Recovered/Resolved]
  - Enthesopathy [Recovered/Resolved]
  - Thrombosis [Recovered/Resolved]
  - Dizziness [Recovering/Resolving]
  - Fatigue [Recovered/Resolved]

NARRATIVE: CASE EVENT DATE: 20180901
